FAERS Safety Report 6709356-8 (Version None)
Quarter: 2010Q2

REPORT INFORMATION
  Report Type: 
  Country: None (occurrence: None)
  Receive Date: 20100504
  Receipt Date: 20100420
  Transmission Date: 20101027
  Serious: Yes (Other)
  Sender: FDA-Public Use
  Company Number: PHHY2010NL25176

PATIENT
  Sex: Male

DRUGS (9)
  1. ZOMETA [Suspect]
     Dosage: 4 MG/5 ML IN 20 MINS
     Route: 042
     Dates: start: 20091105
  2. ZOMETA [Suspect]
     Dosage: 4 MG/5 ML IN 20 MINS
     Route: 042
     Dates: start: 20091126
  3. ZOMETA [Suspect]
     Dosage: 4 MG/5 ML IN 20 MINS
     Route: 042
     Dates: start: 20091218
  4. ZOMETA [Suspect]
     Dosage: 4 MG/5 ML IN 20 MINS
     Route: 042
     Dates: start: 20100104
  5. ZOMETA [Suspect]
     Dosage: 4 MG/5 ML IN 20 MINS
     Route: 042
     Dates: start: 20100126
  6. ZOMETA [Suspect]
     Dosage: 4 MG/5 ML IN 20 MINS
     Route: 042
     Dates: start: 20100215
  7. ZOMETA [Suspect]
     Dosage: 4 MG/5 ML IN 20 MINS
     Route: 042
     Dates: start: 20100309
  8. ZOMETA [Suspect]
     Dosage: 4 MG/5 ML IN 20 MINS
     Route: 042
     Dates: start: 20100330
  9. ZOMETA [Suspect]
     Dosage: 4 MG/5 ML IN 20 MINS
     Route: 042
     Dates: start: 20100419

REACTIONS (1)
  - INGUINAL HERNIA [None]
